FAERS Safety Report 4631878-4 (Version None)
Quarter: 2005Q2

REPORT INFORMATION
  Report Type: 
  Country: None (occurrence: None)
  Receive Date: 20050404
  Receipt Date: 20050128
  Transmission Date: 20051028
  Serious: Yes (Hospitalization)
  Sender: FDA-Public Use
  Company Number: CFX20050003

PATIENT
  Age: 79 Year
  Sex: Male

DRUGS (4)
  1. CIPROFLOXACIN 500 MG DR. REDDY'S [Suspect]
     Indication: ARTHRITIS INFECTIVE
     Dosage: 1 TAB BID PO
     Route: 048
     Dates: start: 20041225, end: 20050126
  2. MONOPRIL [Concomitant]
  3. COUMADIN [Concomitant]
  4. FLOMAX [Concomitant]

REACTIONS (3)
  - ARRHYTHMIA [None]
  - DIZZINESS [None]
  - SYNCOPE [None]
